FAERS Safety Report 16496413 (Version 1)
Quarter: 2019Q2

REPORT INFORMATION
  Report Type: Spontaneous
  Country: SE (occurrence: SE)
  Receive Date: 20190628
  Receipt Date: 20190628
  Transmission Date: 20190711
  Serious: Yes (Hospitalization, Other)
  Sender: FDA-Public Use
  Company Number: SE-BRISTOL-MYERS SQUIBB COMPANY-BMS-2019-060221

PATIENT
  Age: 54 Year
  Sex: Male

DRUGS (5)
  1. MOMETASONE [Concomitant]
     Active Substance: MOMETASONE
     Indication: PRODUCT USED FOR UNKNOWN INDICATION
     Dosage: UNK
     Route: 065
     Dates: start: 20190515
  2. NIVOLUMAB [Suspect]
     Active Substance: NIVOLUMAB
     Indication: MALIGNANT MELANOMA
     Dosage: 378 MILLIGRAM
     Route: 042
     Dates: start: 20181219, end: 20190521
  3. AMOXICILLIN. [Interacting]
     Active Substance: AMOXICILLIN
     Indication: SINUSITIS
     Dosage: UNK MILLIGRAM
     Route: 065
  4. ZOPICLONE [Concomitant]
     Active Substance: ZOPICLONE
     Indication: PRODUCT USED FOR UNKNOWN INDICATION
     Dosage: UNK
     Route: 065
     Dates: start: 20181205
  5. AMOXICILLIN. [Interacting]
     Active Substance: AMOXICILLIN
     Indication: UPPER RESPIRATORY TRACT INFECTION
     Dosage: 2250 MILLIGRAM, NUMBER OF UNITS IN THE INTERVAL: 1 DAY
     Route: 048
     Dates: start: 20190515, end: 20190524

REACTIONS (2)
  - Skin reaction [Not Recovered/Not Resolved]
  - Drug interaction [Unknown]

NARRATIVE: CASE EVENT DATE: 20190524
